FAERS Safety Report 17912619 (Version 1)
Quarter: 2020Q2

REPORT INFORMATION
  Report Type: Spontaneous
  Country: US (occurrence: US)
  Receive Date: 20200618
  Receipt Date: 20200618
  Transmission Date: 20200714
  Serious: Yes (Death)
  Sender: FDA-Public Use
  Company Number: None

PATIENT
  Age: 70 Year
  Sex: Female

DRUGS (18)
  1. DALFAMPRIDINE ER [Suspect]
     Active Substance: DALFAMPRIDINE
     Indication: MULTIPLE SCLEROSIS
     Route: 048
     Dates: start: 20190128, end: 20200618
  2. ATENOLOL 100MG [Concomitant]
     Active Substance: ATENOLOL
  3. BACLOFEN 10MG [Concomitant]
     Active Substance: BACLOFEN
  4. PANTOPRAZOLE 40MG [Concomitant]
     Active Substance: PANTOPRAZOLE SODIUM
  5. LISINOPRIL 10MG [Concomitant]
     Active Substance: LISINOPRIL
  6. PAROXETINE. [Concomitant]
     Active Substance: PAROXETINE
  7. ASPIRIN 81MG EC [Concomitant]
  8. MAGNESIUM 500MG [Concomitant]
  9. METFORMIN 100MG [Concomitant]
  10. NIACIN 100MG [Concomitant]
  11. COPAXONE [Concomitant]
     Active Substance: GLATIRAMER ACETATE
  12. ATORVASTATIN 40MG [Concomitant]
     Active Substance: ATORVASTATIN
  13. CALCIUM 600MG W/ D [Concomitant]
  14. ANASTROZOLE 1MG [Concomitant]
     Active Substance: ANASTROZOLE
  15. GLYBURIDE 5MG [Concomitant]
  16. OMEGA-3 1000MG [Concomitant]
  17. TAMSULOSIN 0.4MG [Concomitant]
     Active Substance: TAMSULOSIN
  18. TIZANIDINE 4MG [Concomitant]
     Active Substance: TIZANIDINE

REACTIONS (1)
  - Death [None]

NARRATIVE: CASE EVENT DATE: 20200618
